FAERS Safety Report 13984010 (Version 1)
Quarter: 2017Q3

REPORT INFORMATION
  Report Type: Spontaneous
  Country: CH (occurrence: CH)
  Receive Date: 20170918
  Receipt Date: 20170918
  Transmission Date: 20171128
  Serious: Yes (Other)
  Sender: FDA-Public Use
  Company Number: CH-PFIZER INC-2005057515

PATIENT
  Age: 39 Year
  Sex: Female

DRUGS (3)
  1. CARBAMAZEPINE. [Interacting]
     Active Substance: CARBAMAZEPINE
     Indication: EPILEPSY
     Route: 048
  2. MISOPROSTOL TABLET [Suspect]
     Active Substance: MISOPROSTOL
     Indication: ABORTION
     Dosage: 800 UG, SINGLE
     Route: 065
  3. MIFEPRISTONE [Interacting]
     Active Substance: MIFEPRISTONE
     Indication: ABORTION
     Dosage: 600 MG, SINGLE
     Route: 048

REACTIONS (3)
  - Drug ineffective [Recovered/Resolved]
  - Drug interaction [Recovered/Resolved]
  - Induced abortion failed [Recovered/Resolved]

NARRATIVE: CASE EVENT DATE: 20041025
